FAERS Safety Report 12357268 (Version 3)
Quarter: 2016Q2

REPORT INFORMATION
  Report Type: Report from Study
  Country: US (occurrence: US)
  Receive Date: 20160511
  Receipt Date: 20160630
  Transmission Date: 20160815
  Serious: Yes (Hospitalization, Other)
  Sender: FDA-Public Use
  Company Number: US-GILEAD-2016-0212975

PATIENT
  Age: 75 Year
  Sex: Female

DRUGS (1)
  1. RANOLAZINE [Suspect]
     Active Substance: RANOLAZINE
     Indication: ANGINA PECTORIS
     Dosage: 500 MG, UNK
     Route: 048

REACTIONS (4)
  - Fall [Recovered/Resolved]
  - Hip arthroplasty [Unknown]
  - Joint injury [Unknown]
  - Mental status changes [Unknown]

NARRATIVE: CASE EVENT DATE: 201512
